FAERS Safety Report 6818466-6 (Version None)
Quarter: 2010Q3

REPORT INFORMATION
  Report Type: 
  Country: None (occurrence: None)
  Receive Date: 20100706
  Receipt Date: 20080403
  Transmission Date: 20110219
  Serious: No
  Sender: FDA-Public Use
  Company Number: US-PFIZER INC-2008030629

PATIENT
  Age: 71 Year
  Sex: Female
  Weight: 56.818 kg

DRUGS (6)
  1. AZITHROMYCIN [Suspect]
     Indication: NASOPHARYNGITIS
     Dates: start: 20080331
  2. DILANTIN [Concomitant]
     Indication: CONVULSION
  3. KEFLEX [Concomitant]
     Indication: PROPHYLAXIS
  4. LIPITOR [Concomitant]
     Indication: BLOOD CHOLESTEROL
  5. ACETYLSALICYLIC ACID [Concomitant]
  6. ANTIINFECTIVES [Concomitant]
     Indication: URINARY TRACT INFECTION

REACTIONS (1)
  - DIARRHOEA [None]
